FAERS Safety Report 9454124 (Version 1)
Quarter: 2013Q3

REPORT INFORMATION
  Report Type: Spontaneous
  Country: US (occurrence: US)
  Receive Date: 20130812
  Receipt Date: 20130812
  Transmission Date: 20140515
  Serious: No
  Sender: FDA-Public Use
  Company Number: US-BAYER-2013-097271

PATIENT
  Sex: 0

DRUGS (2)
  1. ALEVE CAPLET [Suspect]
     Indication: ANALGESIC THERAPY
     Dosage: UNK
  2. ADVIL [Concomitant]

REACTIONS (2)
  - Epigastric discomfort [None]
  - Extra dose administered [None]
